FAERS Safety Report 23472601 (Version 2)
Quarter: 2024Q1

REPORT INFORMATION
  Report Type: Report from Study
  Country: US (occurrence: US)
  Receive Date: 20240202
  Receipt Date: 20240308
  Transmission Date: 20240410
  Serious: No
  Sender: FDA-Public Use
  Company Number: US-AstraZeneca-CH-00553865A

PATIENT
  Sex: Female

DRUGS (1)
  1. STRENSIQ [Suspect]
     Active Substance: ASFOTASE ALFA
     Indication: Product used for unknown indication
     Dosage: 87 MILLIGRAM, QD
     Route: 058

REACTIONS (4)
  - Myalgia [Recovered/Resolved]
  - Injection site pain [Recovered/Resolved]
  - Contusion [Recovered/Resolved]
  - Scar [Recovered/Resolved]
